FAERS Safety Report 6528191-7 (Version None)
Quarter: 2010Q1

REPORT INFORMATION
  Report Type: 
  Country: None (occurrence: None)
  Receive Date: 20100106
  Receipt Date: 20100104
  Transmission Date: 20100710
  Serious: Yes (Life-Threatening, Other)
  Sender: FDA-Public Use
  Company Number: US-WYE-H10401809

PATIENT
  Sex: Female
  Weight: 122.13 kg

DRUGS (12)
  1. PRISTIQ [Suspect]
     Indication: DEPRESSION
     Dosage: 50 MG EVERY 1 TOT
     Route: 048
     Dates: start: 20090723, end: 20090723
  2. LISINOPRIL [Concomitant]
     Indication: HYPERTENSION
     Dosage: UNKNOWN
  3. LOPRESSOR [Concomitant]
     Indication: HYPERTENSION
     Dosage: UNKNOWN
  4. NEXIUM [Concomitant]
     Dosage: UNKNOWN
  5. GLYCERYL TRINITRATE [Concomitant]
  6. LIPITOR [Concomitant]
     Indication: BLOOD CHOLESTEROL INCREASED
  7. TRICOR [Concomitant]
  8. METFORMIN HYDROCHLORIDE [Concomitant]
     Indication: DIABETES MELLITUS
  9. CELEBREX [Concomitant]
  10. IMDUR [Concomitant]
     Indication: CARDIAC DISORDER
  11. GLUCOTROL [Concomitant]
     Indication: DIABETES MELLITUS
     Dosage: UNKNOWN
  12. PLAVIX [Concomitant]

REACTIONS (6)
  - DYSPNOEA [None]
  - GLOSSODYNIA [None]
  - OPEN WOUND [None]
  - RESTLESSNESS [None]
  - SLEEP TALKING [None]
  - SWOLLEN TONGUE [None]
